FAERS Safety Report 14784203 (Version 1)
Quarter: 2018Q2

REPORT INFORMATION
  Report Type: Spontaneous
  Country: DE (occurrence: DE)
  Receive Date: 20180420
  Receipt Date: 20180420
  Transmission Date: 20180711
  Serious: Yes (Other)
  Sender: FDA-Public Use
  Company Number: DE-TEVA-2018-DE-882436

PATIENT
  Age: 49 Year
  Sex: Female

DRUGS (1)
  1. ATORVASTATIN-RATIOPHARM 20 MG FILMTABLETTEN [Suspect]
     Active Substance: ATORVASTATIN
     Indication: TYPE IIA HYPERLIPIDAEMIA
     Dosage: 20 MILLIGRAM DAILY; WAS USED SINCE LAUNCH OF RATIOPHARM PRODUCT
     Route: 048
     Dates: end: 20180402

REACTIONS (4)
  - Myositis [Recovering/Resolving]
  - Myalgia [Not Recovered/Not Resolved]
  - Monoplegia [Not Recovered/Not Resolved]
  - Vitamin D decreased [Not Recovered/Not Resolved]

NARRATIVE: CASE EVENT DATE: 2015
